FAERS Safety Report 7444492-2 (Version None)
Quarter: 2011Q2

REPORT INFORMATION
  Report Type: 
  Country: None (occurrence: None)
  Receive Date: 20110429
  Receipt Date: 20110421
  Transmission Date: 20111010
  Serious: Yes (Other)
  Sender: FDA-Public Use
  Company Number: US-ASTELLAS-2010US001325

PATIENT

DRUGS (4)
  1. FLUDARABINE PHOSPHATE [Suspect]
     Indication: RENAL TRANSPLANT
     Dosage: UNK
     Route: 065
  2. MYCOPHENOLATE MOFETIL [Suspect]
     Indication: RENAL TRANSPLANT
     Dosage: UNK
     Route: 065
  3. TACROLIMUS [Suspect]
     Indication: RENAL TRANSPLANT
     Dosage: UNK
     Route: 065
  4. CYCLOPHOSPHAMIDE [Suspect]
     Indication: RENAL TRANSPLANT
     Dosage: UNK
     Route: 065

REACTIONS (4)
  - APLASTIC ANAEMIA [None]
  - VIRAL INFECTION [None]
  - SEPSIS [None]
  - RENAL GRAFT LOSS [None]
